FAERS Safety Report 6769686-0 (Version None)
Quarter: 2010Q2

REPORT INFORMATION
  Report Type: 
  Country: None (occurrence: None)
  Receive Date: 20100615
  Receipt Date: 20100604
  Transmission Date: 20101027
  Serious: Yes (Death)
  Sender: FDA-Public Use
  Company Number: JP-ROCHE-634253

PATIENT
  Sex: Male
  Weight: 56 kg

DRUGS (16)
  1. TOCILIZUMAB [Suspect]
     Indication: RHEUMATOID ARTHRITIS
     Route: 041
     Dates: start: 20080723, end: 20080723
  2. TOCILIZUMAB [Suspect]
     Route: 041
     Dates: start: 20080820, end: 20080820
  3. TOCILIZUMAB [Suspect]
     Route: 041
     Dates: start: 20080922, end: 20080922
  4. TOCILIZUMAB [Suspect]
     Route: 041
     Dates: start: 20081020, end: 20081020
  5. TOCILIZUMAB [Suspect]
     Route: 041
     Dates: start: 20081117, end: 20081117
  6. TOCILIZUMAB [Suspect]
     Route: 041
     Dates: start: 20081215, end: 20081215
  7. TOCILIZUMAB [Suspect]
     Route: 041
     Dates: start: 20090113, end: 20090113
  8. TOCILIZUMAB [Suspect]
     Route: 041
     Dates: start: 20090210, end: 20090210
  9. TOCILIZUMAB [Suspect]
     Route: 041
     Dates: start: 20090310, end: 20090310
  10. TOCILIZUMAB [Suspect]
     Route: 041
     Dates: start: 20090407, end: 20090407
  11. AZULFIDINE [Concomitant]
     Dosage: FORM: ENTERIC, STOP DATE: 2009
     Route: 048
     Dates: end: 20090101
  12. PREDNISOLONE [Concomitant]
     Dosage: STOP DATE: 2009
     Route: 048
     Dates: end: 20090101
  13. ALFAROL [Concomitant]
     Dosage: STOP DATE: 2009
     Route: 048
     Dates: end: 20090101
  14. TAKEPRON [Concomitant]
     Dosage: STOP DATE: 2009
     Route: 048
     Dates: end: 20090101
  15. ISONIAZID [Concomitant]
     Dosage: DRUG: ISOCOTIN, DOSE FORM: PERORAL AGENT
     Route: 048
     Dates: start: 20080808, end: 20080918
  16. ISONIAZID [Concomitant]
     Dosage: STOP DATE: 2009
     Route: 048
     Dates: start: 20080919, end: 20090101

REACTIONS (1)
  - INTERSTITIAL LUNG DISEASE [None]
